FAERS Safety Report 5476931-0 (Version None)
Quarter: 2007Q4

REPORT INFORMATION
  Report Type: 
  Country: None (occurrence: None)
  Receive Date: 20071004
  Receipt Date: 20070926
  Transmission Date: 20080405
  Serious: Yes (Hospitalization)
  Sender: FDA-Public Use
  Company Number: JP-ASTRAZENECA-2007AP06083

PATIENT
  Age: 67 Year
  Sex: Female
  Weight: 55 kg

DRUGS (4)
  1. IRESSA [Suspect]
     Route: 048
     Dates: start: 20070625, end: 20070724
  2. DIHYDROCODEINE PHOSPHATE [Concomitant]
     Route: 048
  3. PURSENNID [Concomitant]
     Route: 048
  4. DIACORT [Concomitant]
     Route: 003

REACTIONS (1)
  - HEPATIC FUNCTION ABNORMAL [None]
